FAERS Safety Report 9304798 (Version 1)
Quarter: 2013Q2

REPORT INFORMATION
  Report Type: Spontaneous
  Country: US (occurrence: None)
  Receive Date: 20130521
  Receipt Date: 20130521
  Transmission Date: 20140414
  Serious: Yes (Hospitalization)
  Sender: FDA-Public Use
  Company Number: None

PATIENT
  Age: 79 Year
  Sex: Male
  Weight: 83 kg

DRUGS (1)
  1. NAFCILLIN [Suspect]
     Route: 042
     Dates: start: 20130215, end: 20130215

REACTIONS (3)
  - Drug reaction with eosinophilia and systemic symptoms [None]
  - Confusional state [None]
  - Renal failure acute [None]
